FAERS Safety Report 4592662-3 (Version None)
Quarter: 2005Q1

REPORT INFORMATION
  Report Type: 
  Country: None (occurrence: None)
  Receive Date: 20050222
  Receipt Date: 20050204
  Transmission Date: 20050727
  Serious: Yes (Death, Hospitalization)
  Sender: FDA-Public Use
  Company Number: MPS1-10319

PATIENT
  Age: 9 Year
  Sex: Female

DRUGS (1)
  1. ALDURAZYME [Suspect]
     Indication: MUCOPOLYSACCHARIDOSIS IH/S
     Dosage: 0.58 MG/KG QWK, IV
     Route: 042
     Dates: start: 20040317, end: 20050201

REACTIONS (14)
  - CARDIAC FAILURE CONGESTIVE [None]
  - CARDIO-RESPIRATORY ARREST [None]
  - CHEST PAIN [None]
  - HYPERTENSION [None]
  - HYPERTROPHIC CARDIOMYOPATHY [None]
  - INFUSION RELATED REACTION [None]
  - INTERCOSTAL RETRACTION [None]
  - LOSS OF CONSCIOUSNESS [None]
  - MITRAL VALVE INCOMPETENCE [None]
  - PRODUCTIVE COUGH [None]
  - PULMONARY HYPERTENSION [None]
  - PULMONARY VALVE INCOMPETENCE [None]
  - TRICUSPID VALVE INCOMPETENCE [None]
  - WHEEZING [None]
